FAERS Safety Report 7512183-5 (Version None)
Quarter: 2011Q2

REPORT INFORMATION
  Report Type: 
  Country: None (occurrence: None)
  Receive Date: 20110531
  Receipt Date: 20110525
  Transmission Date: 20111010
  Serious: Yes (Other)
  Sender: FDA-Public Use
  Company Number: BR-PFIZER INC-2011113165

PATIENT
  Sex: Male
  Weight: 78 kg

DRUGS (1)
  1. LONITEN [Suspect]
     Indication: CEREBROVASCULAR ACCIDENT
     Dosage: 10 MG, 1X/DAY
     Route: 048
     Dates: start: 20060101

REACTIONS (2)
  - BEDRIDDEN [None]
  - CONVULSION [None]
